FAERS Safety Report 11060202 (Version 1)
Quarter: 2015Q2

REPORT INFORMATION
  Report Type: Spontaneous
  Country: US (occurrence: US)
  Receive Date: 20150423
  Receipt Date: 20150423
  Transmission Date: 20150821
  Serious: Yes (Other)
  Sender: FDA-Public Use
  Company Number: US-TEVA-556504USA

PATIENT
  Age: 78 Year
  Sex: Female
  Weight: 64 kg

DRUGS (8)
  1. LISINOPRIL. [Suspect]
     Active Substance: LISINOPRIL
     Route: 065
  2. PREMARIN VAGINAL [Suspect]
     Active Substance: ESTROGENS, CONJUGATED
     Indication: SKIN FRAGILITY
  3. CIPROFLOXACIN (DR. REDDY^S) [Suspect]
     Active Substance: CIPROFLOXACIN
     Indication: BACTERIAL INFECTION
     Dosage: 1000 MILLIGRAM DAILY;
     Route: 065
  4. LOSARTAN POTASSIUM. [Concomitant]
     Active Substance: LOSARTAN POTASSIUM
     Indication: HYPERTENSION
     Dosage: 50 MILLIGRAM DAILY;
  5. AMLODIPINE BESILATE [Concomitant]
     Active Substance: AMLODIPINE BESYLATE
  6. HYDROCHLOROTHIAZIDE. [Concomitant]
     Active Substance: HYDROCHLOROTHIAZIDE
     Indication: FLUID RETENTION
     Dosage: 1 MILLIGRAM DAILY;
  7. PREMARIN VAGINAL [Suspect]
     Active Substance: ESTROGENS, CONJUGATED
     Indication: DRY SKIN
     Dosage: EVERY OTHER DAY
     Route: 065
     Dates: start: 2011
  8. METRONIDAZOLE. [Suspect]
     Active Substance: METRONIDAZOLE
     Indication: BACTERIAL INFECTION
     Dosage: 1500 MILLIGRAM DAILY;
     Route: 065

REACTIONS (11)
  - Confusional state [Unknown]
  - Melaena [Unknown]
  - Decreased appetite [Unknown]
  - Tremor [Unknown]
  - Mood altered [Unknown]
  - Diarrhoea haemorrhagic [Not Recovered/Not Resolved]
  - Weight decreased [Not Recovered/Not Resolved]
  - Cough [Unknown]
  - Joint swelling [Unknown]
  - Retching [Unknown]
  - Constipation [Unknown]

NARRATIVE: CASE EVENT DATE: 201502
